FAERS Safety Report 8090667-1 (Version None)
Quarter: 2012Q1

REPORT INFORMATION
  Report Type: 
  Country: None (occurrence: None)
  Receive Date: 20120124
  Receipt Date: 20120116
  Transmission Date: 20120608
  Serious: No
  Sender: FDA-Public Use
  Company Number: 2012SP003748

PATIENT

DRUGS (1)
  1. SAPHRIS [Suspect]

REACTIONS (1)
  - SWOLLEN TONGUE [None]
